FAERS Safety Report 22293904 (Version 2)
Quarter: 2023Q4

REPORT INFORMATION
  Report Type: Spontaneous
  Country: CN (occurrence: CN)
  Receive Date: 20230508
  Receipt Date: 20231006
  Transmission Date: 20240110
  Serious: Yes (Life-Threatening, Other)
  Sender: FDA-Public Use
  Company Number: CN-BAYER-2023A063057

PATIENT
  Age: 46 Year
  Sex: Female
  Weight: 45 kg

DRUGS (1)
  1. ULTRAVIST [Suspect]
     Active Substance: IOPROMIDE
     Indication: Computerised tomogram heart
     Dosage: 80 ML, ONCE, HIGH PRESSURE INJECTION ENHANCED WALKING SPEED 5.5ML/S, PRESSURE 325PSI
     Route: 042
     Dates: start: 20230426, end: 20230426

REACTIONS (12)
  - Anaphylactic shock [Recovering/Resolving]
  - Dizziness [Recovering/Resolving]
  - Asthenia [Recovering/Resolving]
  - Eyelid oedema [Recovering/Resolving]
  - Confusional state [Recovering/Resolving]
  - Hyperhidrosis [None]
  - Pallor [None]
  - Erythema [None]
  - Coma [None]
  - Blood pressure decreased [None]
  - Oxygen saturation decreased [None]
  - Chest discomfort [Recovering/Resolving]

NARRATIVE: CASE EVENT DATE: 20230426
